FAERS Safety Report 24059537 (Version 1)
Quarter: 2024Q3

REPORT INFORMATION
  Report Type: Spontaneous
  Country: JP (occurrence: JP)
  Receive Date: 20240708
  Receipt Date: 20240708
  Transmission Date: 20241017
  Serious: Yes (Death, Hospitalization, Other)
  Sender: NOVARTIS
  Company Number: JP-002147023-NVSJ2024JP008107

PATIENT
  Sex: Male

DRUGS (2)
  1. DABRAFENIB [Suspect]
     Active Substance: DABRAFENIB
     Indication: Malignant melanoma
     Dosage: UNK
     Route: 065
     Dates: start: 201606
  2. TRAMETINIB [Suspect]
     Active Substance: TRAMETINIB
     Indication: Malignant melanoma
     Dosage: UNK
     Route: 065
     Dates: start: 201606

REACTIONS (11)
  - Intra-abdominal haemorrhage [Fatal]
  - Abdominal pain [Fatal]
  - Depressed level of consciousness [Fatal]
  - Shock haemorrhagic [Fatal]
  - Disseminated intravascular coagulation [Fatal]
  - Hepatic function abnormal [Fatal]
  - Renal impairment [Fatal]
  - Metastases to spleen [Fatal]
  - Metastases to lung [Unknown]
  - Metastases to liver [Unknown]
  - Metastases to bone [Unknown]

NARRATIVE: CASE EVENT DATE: 20180501
